FAERS Safety Report 26177655 (Version 1)
Quarter: 2025Q4

REPORT INFORMATION
  Report Type: Spontaneous
  Country: US (occurrence: US)
  Receive Date: 20251219
  Receipt Date: 20251219
  Transmission Date: 20260118
  Serious: Yes (Hospitalization)
  Sender: SUPERNUS PHARMACEUTICALS, INC
  Company Number: US-SUP-SUP202510-004174

PATIENT
  Age: 37 Year
  Sex: Female

DRUGS (1)
  1. TROKENDI XR [Suspect]
     Active Substance: TOPIRAMATE
     Indication: Migraine
     Dosage: 100MG ONCE DAILY

REACTIONS (1)
  - Nephrolithiasis [Recovering/Resolving]
